FAERS Safety Report 6589078-7 (Version None)
Quarter: 2010Q1

REPORT INFORMATION
  Report Type: 
  Country: None (occurrence: None)
  Receive Date: 20100218
  Receipt Date: 20100210
  Transmission Date: 20100710
  Serious: Yes (Other)
  Sender: FDA-Public Use
  Company Number: GXKR2010BR01702

PATIENT
  Age: 74 Year
  Sex: Female

DRUGS (11)
  1. AMIODARONE (NGX) [Suspect]
     Dosage: 400 MG/DAY
     Route: 065
  2. FLUNARIZINE [Suspect]
     Dosage: 10 MG/DAY
     Route: 065
  3. LEVOTHYROXINE SODIUM [Concomitant]
     Dosage: 50 UG, QD
     Route: 065
  4. CAPTOPRIL [Concomitant]
     Dosage: 75 MG, QD
     Route: 065
  5. TRIMETAZIDINE [Concomitant]
     Dosage: 60 MG, QD
     Route: 065
  6. LEVODOPA W/BENSERAZIDE/ [Concomitant]
     Dosage: 1 DF, QD
     Route: 065
  7. BIPERIDEN HYDROCHLORIDE TAB [Concomitant]
     Dosage: 4 MG, QD
     Route: 065
  8. AMANTADINE HCL [Concomitant]
     Dosage: 200 MG, QD
     Route: 065
  9. PRAMIPEXOLE DIHYDROCHLORIDE [Concomitant]
     Dosage: 3 MG, QD
     Route: 065
  10. TOLCAPONE [Concomitant]
     Dosage: 300 MG, QD
     Route: 065
  11. MEMANTINE [Concomitant]
     Dosage: UPTO 20 MG, QD
     Route: 065

REACTIONS (14)
  - ABASIA [None]
  - AKINESIA [None]
  - APRAXIA [None]
  - BRADYKINESIA [None]
  - COGNITIVE DISORDER [None]
  - DYSARTHRIA [None]
  - DYSPHAGIA [None]
  - FALL [None]
  - GAZE PALSY [None]
  - MUSCLE RIGIDITY [None]
  - PROGRESSIVE SUPRANUCLEAR PALSY [None]
  - TORTICOLLIS [None]
  - TREMOR [None]
  - WHEELCHAIR USER [None]
